FAERS Safety Report 4550851-8 (Version None)
Quarter: 2004Q4

REPORT INFORMATION
  Report Type: 
  Country: None (occurrence: None)
  Receive Date: 20041217
  Receipt Date: 20040913
  Transmission Date: 20050328
  Serious: No
  Sender: FDA-Public Use
  Company Number: 2004-BP-08250BP

PATIENT
  Age: 71 Year
  Sex: Male
  Weight: 90.7 kg

DRUGS (10)
  1. SPIRIVA [Suspect]
     Dosage: 18 MCG (18 MCG, 1 QD VIA HANDIHALER), IH
     Route: 055
     Dates: start: 20040715, end: 20040825
  2. SYNTHROID [Concomitant]
  3. PRINIVIL [Concomitant]
  4. RABEPRAZOLE SODIUM [Concomitant]
  5. HYDROCHLOROTHIAZIDE [Concomitant]
  6. ADVAIR (SERETIDE MITE) [Concomitant]
  7. ALBUTEROL [Concomitant]
  8. XANAX [Concomitant]
  9. RESTORIL [Concomitant]
  10. OXYGEN (OXYGEN) [Concomitant]

REACTIONS (1)
  - PRURITUS GENERALISED [None]
